FAERS Safety Report 6823665-3 (Version None)
Quarter: 2010Q3

REPORT INFORMATION
  Report Type: 
  Country: None (occurrence: None)
  Receive Date: 20100708
  Receipt Date: 20060829
  Transmission Date: 20110219
  Serious: No
  Sender: FDA-Public Use
  Company Number: US-PFIZER INC-2006105677

PATIENT
  Sex: Female
  Weight: 101.6 kg

DRUGS (4)
  1. CHANTIX [Suspect]
     Indication: SMOKING CESSATION THERAPY
     Dates: start: 20060817
  2. ANTIDEPRESSANTS [Concomitant]
  3. POTASSIUM CHLORIDE [Concomitant]
  4. ALL OTHER THERAPEUTIC PRODUCTS [Concomitant]

REACTIONS (3)
  - ABNORMAL DREAMS [None]
  - MALAISE [None]
  - SLEEP DISORDER [None]
